FAERS Safety Report 7339043-7 (Version None)
Quarter: 2011Q1

REPORT INFORMATION
  Report Type: 
  Country: None (occurrence: None)
  Receive Date: 20110308
  Receipt Date: 20110223
  Transmission Date: 20110831
  Serious: Yes (Hospitalization, Other)
  Sender: FDA-Public Use
  Company Number: FR-ELI_LILLY_AND_COMPANY-FR201102007438

PATIENT
  Sex: Male

DRUGS (14)
  1. CYMBALTA [Suspect]
     Indication: DEPRESSION
     Dosage: 60 MG, DAILY (1/D)
     Route: 048
     Dates: start: 20080501, end: 20080710
  2. ALDACTONE [Concomitant]
  3. GLUCOPHAGE [Concomitant]
     Dosage: 1000 MG, UNK
  4. DIACOR                             /00489702/ [Concomitant]
  5. LASIX [Concomitant]
     Dosage: 60 MG, UNK
  6. TAHOR [Concomitant]
     Dosage: 40 MG, UNK
  7. KETUM [Concomitant]
  8. DIGOXIN [Concomitant]
     Dosage: 0.25 MG, UNK
  9. RIVOTRIL [Concomitant]
  10. DI-ANTALVIC [Concomitant]
  11. TRIATEC [Concomitant]
  12. AVANDAMET [Concomitant]
     Dates: start: 20070101
  13. PREVISCAN [Concomitant]
  14. BISOPROLOL FUMARATE [Concomitant]
     Dosage: 10 MG, UNK

REACTIONS (4)
  - CYTOLYTIC HEPATITIS [None]
  - DYSPNOEA [None]
  - RENAL FAILURE [None]
  - TROPONIN [None]
